FAERS Safety Report 8105727-6 (Version None)
Quarter: 2012Q1

REPORT INFORMATION
  Report Type: 
  Country: None (occurrence: None)
  Receive Date: 20120201
  Receipt Date: 20120126
  Transmission Date: 20120608
  Serious: Yes (Life-Threatening)
  Sender: FDA-Public Use
  Company Number: AR-TEVA-317198ISR

PATIENT
  Sex: Male
  Weight: 75 kg

DRUGS (4)
  1. RASAGILINE MESYLATE [Suspect]
     Indication: PARKINSON'S DISEASE
     Dosage: 1 MILLIGRAM; OL- ADAGIO FU, 1MG/DAY
     Route: 048
     Dates: start: 20100119
  2. RASAGILINE MESYLATE [Suspect]
     Dosage: 1 MILLIGRAM; DB PHASE: 1MG VS 2MG VS PLACEBO
     Route: 048
     Dates: start: 20060817, end: 20070426
  3. CARBIDOPA + LEVODOPA [Suspect]
     Indication: PARKINSON'S DISEASE
     Dosage: 100/25 BID
     Route: 048
     Dates: start: 20110419
  4. RASAGILINE MESYLATE [Suspect]
     Dosage: 1 MILLIGRAM; ACTIVE PHASE: 1MG VS 2MG
     Route: 048
     Dates: start: 20070424, end: 20071227

REACTIONS (1)
  - SQUAMOUS CELL CARCINOMA [None]
